FAERS Safety Report 24458335 (Version 1)
Quarter: 2024Q4

REPORT INFORMATION
  Report Type: Report from Study
  Country: US (occurrence: US)
  Receive Date: 20241018
  Receipt Date: 20241018
  Transmission Date: 20250114
  Serious: No
  Sender: ROCHE
  Company Number: US-ROCHE-3525138

PATIENT
  Age: 53 Year
  Sex: Female

DRUGS (8)
  1. RITUXAN [Suspect]
     Active Substance: RITUXIMAB
     Indication: Rheumatoid arthritis
     Dosage: EVERY 4-6 MONTHS, LAST DOSE: /AUG/2023
     Route: 042
     Dates: start: 201806
  2. RITUXAN [Suspect]
     Active Substance: RITUXIMAB
     Indication: Embolism venous
  3. PREDNISONE [Concomitant]
     Active Substance: PREDNISONE
  4. SULFASALAZINE [Concomitant]
     Active Substance: SULFASALAZINE
  5. FOLIC ACID [Concomitant]
     Active Substance: FOLIC ACID
  6. METHOTREXATE [Concomitant]
     Active Substance: METHOTREXATE
  7. METHOCARBAMOL [Concomitant]
     Active Substance: METHOCARBAMOL
  8. PREGABALIN [Concomitant]
     Active Substance: PREGABALIN

REACTIONS (6)
  - Night sweats [Unknown]
  - Dyspepsia [Unknown]
  - Depression [Unknown]
  - Anxiety [Unknown]
  - Middle insomnia [Unknown]
  - Tenderness [Unknown]
